FAERS Safety Report 6196259-3 (Version None)
Quarter: 2009Q2

REPORT INFORMATION
  Report Type: 
  Country: None (occurrence: None)
  Receive Date: 20090520
  Receipt Date: 20090512
  Transmission Date: 20091009
  Serious: Yes (Hospitalization, Other)
  Sender: FDA-Public Use
  Company Number: US-TYCO HEALTHCARE/MALLINCKRODT-T200901032

PATIENT
  Age: 87 Year
  Sex: Male
  Weight: 54.422 kg

DRUGS (1)
  1. OPTIRAY 300 [Suspect]
     Indication: COMPUTERISED TOMOGRAM THORAX
     Dosage: 125 ML, SINGLE
     Route: 042
     Dates: start: 20090506, end: 20090506

REACTIONS (2)
  - AIR EMBOLISM [None]
  - DRUG ADMINISTRATION ERROR [None]
